FAERS Safety Report 9547849 (Version 3)
Quarter: 2013Q4

REPORT INFORMATION
  Report Type: Spontaneous
  Country: BR (occurrence: BR)
  Receive Date: 20130924
  Receipt Date: 20131226
  Transmission Date: 20140711
  Serious: Yes (Hospitalization, Other)
  Sender: FDA-Public Use
  Company Number: BR-SANOFI-AVENTIS-2013SA091566

PATIENT
  Age: 47 Year
  Sex: Male

DRUGS (4)
  1. STILNOX [Suspect]
     Indication: SEDATION
     Dosage: STRENGTH: 10 MG
     Route: 048
     Dates: start: 2008
  2. STILNOX [Suspect]
     Indication: SEDATION
     Dosage: INCREASED DOSE 10 TABLETS SOMETIMES 20 TABLETS DAILY
     Route: 048
  3. BUPROPION [Concomitant]
  4. ANTIPSYCHOTICS [Concomitant]

REACTIONS (5)
  - Convulsion [Not Recovered/Not Resolved]
  - Mental disorder [Not Recovered/Not Resolved]
  - Drug dependence [Not Recovered/Not Resolved]
  - Road traffic accident [Unknown]
  - Abnormal behaviour [Not Recovered/Not Resolved]
